FAERS Safety Report 6483710-4 (Version None)
Quarter: 2009Q4

REPORT INFORMATION
  Report Type: 
  Country: None (occurrence: None)
  Receive Date: 20091209
  Receipt Date: 20091130
  Transmission Date: 20100525
  Serious: Yes (Hospitalization)
  Sender: FDA-Public Use
  Company Number: NZ-ASTRAZENECA-2009SE29245

PATIENT
  Age: 875 Month
  Sex: Male

DRUGS (5)
  1. CANDESARTAN CILEXETIL [Suspect]
     Route: 048
     Dates: start: 20031101, end: 20050301
  2. CITALOPRAM HYDROBROMIDE [Interacting]
     Route: 048
     Dates: start: 20041201
  3. FRUSEMIDE [Interacting]
     Route: 048
     Dates: start: 20011101
  4. ALBUTEROL [Concomitant]
     Dosage: 200 RG DAILY
     Route: 055
  5. FELODIPINE [Concomitant]
     Route: 048

REACTIONS (5)
  - ATAXIA [None]
  - DRUG INTERACTION [None]
  - FATIGUE [None]
  - HYPERKALAEMIA [None]
  - HYPONATRAEMIA [None]
